FAERS Safety Report 23834563 (Version 1)
Quarter: 2024Q2

REPORT INFORMATION
  Report Type: Spontaneous
  Country: US (occurrence: US)
  Receive Date: 20240509
  Receipt Date: 20240509
  Transmission Date: 20240715
  Serious: No
  Sender: FDA-Public Use
  Company Number: US-UCBSA-2023031643

PATIENT
  Sex: Male
  Weight: 178 kg

DRUGS (1)
  1. CIMZIA [Suspect]
     Active Substance: CERTOLIZUMAB PEGOL
     Indication: Crohn^s disease
     Dosage: 2 MILLILITER, EV 2 WEEKS(QOW)
     Route: 058
     Dates: start: 2008, end: 2023

REACTIONS (1)
  - Drug ineffective [Unknown]
